FAERS Safety Report 4452563-8 (Version None)
Quarter: 2004Q3

REPORT INFORMATION
  Report Type: 
  Country: None (occurrence: None)
  Receive Date: 20040916
  Receipt Date: 20040902
  Transmission Date: 20050211
  Serious: Yes (Death)
  Sender: FDA-Public Use
  Company Number: 2004-DE-04668GD

PATIENT
  Age: 52 Year
  Sex: Male

DRUGS (8)
  1. DICLOFENAC (DICLOFENAC) [Suspect]
     Indication: ARTHRALGIA
  2. ACETYLSALICYLIC ACID SRT [Suspect]
     Indication: CARDIOVASCULAR DISORDER
     Dosage: 100 MG
  3. ACETYLSALICYLIC ACID SRT [Suspect]
     Indication: PROPHYLAXIS
     Dosage: 100 MG
  4. SIMVASTATIN (SIMVASTATIN) (SIMVASTATIN) [Concomitant]
  5. DEPOT-INSULIN (DEPOT -INSULIN) [Concomitant]
  6. LISINOPRIL [Concomitant]
  7. SPIRONOLACTONE [Concomitant]
  8. BISOPROLOL FUMARATE [Concomitant]

REACTIONS (8)
  - CARDIAC FAILURE [None]
  - DRUG INTOLERANCE [None]
  - GASTRITIS EROSIVE [None]
  - GENERAL PHYSICAL HEALTH DETERIORATION [None]
  - RENAL FAILURE ACUTE [None]
  - SOMNOLENCE [None]
  - THERAPY NON-RESPONDER [None]
  - VOMITING [None]
